FAERS Safety Report 8297894-9 (Version None)
Quarter: 2012Q2

REPORT INFORMATION
  Report Type: 
  Country: None (occurrence: None)
  Receive Date: 20120419
  Receipt Date: 20120416
  Transmission Date: 20120825
  Serious: Yes (Other)
  Sender: FDA-Public Use
  Company Number: PHEH2012US006972

PATIENT
  Sex: Female

DRUGS (7)
  1. DEPAKOTE [Concomitant]
     Indication: BIPOLAR DISORDER
  2. LAMOTRGINE [Concomitant]
     Indication: BIPOLAR DISORDER
  3. GILENYA [Suspect]
     Indication: RELAPSING-REMITTING MULTIPLE SCLEROSIS
     Dosage: 0.5 MG, QD
     Route: 048
     Dates: start: 20110301
  4. NUEDEXTA [Concomitant]
     Indication: BIPOLAR DISORDER
  5. LYRICA [Concomitant]
     Indication: BIPOLAR DISORDER
  6. COCAINE [Suspect]
     Dosage: UNK UKN, UNK
  7. MARIJUANA [Suspect]
     Dosage: UNK UKN, UNK

REACTIONS (12)
  - COGNITIVE DISORDER [None]
  - PANIC ATTACK [None]
  - AGITATION [None]
  - MULTIPLE SCLEROSIS RELAPSE [None]
  - BIPOLAR DISORDER [None]
  - MENTAL STATUS CHANGES [None]
  - DYSPHEMIA [None]
  - FATIGUE [None]
  - HYPERVENTILATION [None]
  - AMNESIA [None]
  - BALANCE DISORDER [None]
  - MULTIPLE DRUG OVERDOSE [None]
